FAERS Safety Report 8930331 (Version 2)
Quarter: 2012Q4

REPORT INFORMATION
  Report Type: 
  Country: US (occurrence: US)
  Receive Date: 20121128
  Receipt Date: 20121221
  Transmission Date: 20130627
  Serious: Yes (Death, Hospitalization)
  Sender: FDA-Public Use
  Company Number: US-GLAXOSMITHKLINE-A1003120A

PATIENT
  Age: 55 Year
  Sex: Female

DRUGS (16)
  1. TYKERB [Suspect]
     Indication: POLYARTHRITIS
     Dosage: 1000MG Per day
     Route: 048
     Dates: start: 20110307, end: 20121015
  2. ANASTROZOLE [Concomitant]
  3. RANITIDINE [Concomitant]
  4. TRAMADOL [Concomitant]
  5. ONDANSETRON [Concomitant]
  6. AMBIEN [Concomitant]
  7. PREDNISONE [Concomitant]
  8. DOCUSATE [Concomitant]
  9. METOCLOPRAMIDE [Concomitant]
  10. DEXAMETHASONE [Concomitant]
  11. ZOMETA [Concomitant]
  12. HERCEPTIN [Concomitant]
  13. LOPERAMIDE [Concomitant]
  14. SIMVASTATIN [Concomitant]
  15. ASPIRIN [Concomitant]
  16. NEUPOGEN [Concomitant]

REACTIONS (3)
  - Death [Fatal]
  - General physical condition [Unknown]
  - Off label use [Unknown]
